FAERS Safety Report 17091421 (Version 1)
Quarter: 2019Q4

REPORT INFORMATION
  Report Type: Spontaneous
  Country: US (occurrence: US)
  Receive Date: 20191101
  Receipt Date: 20191101
  Transmission Date: 20200122
  Serious: Yes (Hospitalization)
  Sender: FDA-Public Use
  Company Number: None

PATIENT
  Age: 47 Year
  Sex: Female

DRUGS (2)
  1. STELARA [Suspect]
     Active Substance: USTEKINUMAB
     Dosage: ?          OTHER FREQUENCY:1 X EVERY 8 WKS ;?
     Route: 058
  2. LAMICTAL TAB 100MG [Concomitant]

REACTIONS (7)
  - Headache [None]
  - Abdominal pain upper [None]
  - Therapy cessation [None]
  - Diarrhoea [None]
  - Fatigue [None]
  - Pneumonia [None]
  - Gastric ulcer [None]
